FAERS Safety Report 9624674 (Version 2)
Quarter: 2013Q4

REPORT INFORMATION
  Report Type: Spontaneous
  Country: US (occurrence: US)
  Receive Date: 20131015
  Receipt Date: 20131021
  Transmission Date: 20140711
  Serious: Yes (Other)
  Sender: FDA-Public Use
  Company Number: US-TEVA-438340USA

PATIENT
  Age: 26 Year
  Sex: Female
  Weight: 104.42 kg

DRUGS (1)
  1. PLAN B ONE-STEP [Suspect]
     Indication: POST COITAL CONTRACEPTION
     Dosage: 1.5 MILLIGRAM DAILY;
     Route: 048
     Dates: start: 20131007, end: 20131007

REACTIONS (3)
  - Vaginal haemorrhage [Recovered/Resolved]
  - Pallor [Recovered/Resolved]
  - Menstruation irregular [Recovered/Resolved]
